FAERS Safety Report 23404209 (Version 1)
Quarter: 2024Q1

REPORT INFORMATION
  Report Type: Spontaneous
  Country: CN (occurrence: CN)
  Receive Date: 20240116
  Receipt Date: 20240116
  Transmission Date: 20240409
  Serious: Yes (Other)
  Sender: FDA-Public Use
  Company Number: None

PATIENT
  Age: 34 Year
  Sex: Male
  Weight: 65 kg

DRUGS (7)
  1. MANNITOL [Suspect]
     Active Substance: MANNITOL
     Indication: Thoracic vertebral fracture
     Dosage: 150 ML TWICE DAILY (DOSAGE FORM: INJECTION)
     Route: 041
     Dates: start: 20231226, end: 20231226
  2. SODIUM CHLORIDE [Suspect]
     Active Substance: SODIUM CHLORIDE
     Indication: Medication dilution
     Dosage: 250 ML ONCE DAILY, USED TO DILUTE 5 MG SODIUM AESCINATE
     Route: 041
     Dates: start: 20231226, end: 20231230
  3. SODIUM CHLORIDE [Suspect]
     Active Substance: SODIUM CHLORIDE
     Dosage: 100 ML TWICE DAILY, USED TO DILUTE CEFAZOLIN SODIUM
     Route: 041
     Dates: start: 20231226, end: 20231227
  4. SODIUM CHLORIDE [Suspect]
     Active Substance: SODIUM CHLORIDE
     Dosage: 10 ML TWICE DAILY, USED TO DILUTE FLURBIPROFEN AXETIL
     Route: 042
     Dates: start: 20231226, end: 20231230
  5. SODIUM ESCINATE [Suspect]
     Active Substance: SODIUM ESCINATE
     Indication: Thoracic vertebral fracture
     Dosage: 5 MG ONCE DAILY DILUTED IN 0.9 % 250 ML SODIUM CHLORIDE (DOSAGE FORM: POWDER INJECTION)
     Route: 041
     Dates: start: 20231226, end: 20231230
  6. CEFAZOLIN SODIUM [Suspect]
     Active Substance: CEFAZOLIN SODIUM
     Indication: Thoracic vertebral fracture
     Dosage: 1 G TWICE DAILY DILUTED IN 0.9% 100 ML SODIUM CHLORIDE (DOSAGE FORM: POWDER INJECTION)
     Route: 041
     Dates: start: 20231226, end: 20231227
  7. FLURBIPROFEN AXETIL [Suspect]
     Active Substance: FLURBIPROFEN AXETIL
     Indication: Thoracic vertebral fracture
     Dosage: 5 ML TWICE DAILY DILUTED IN 0.9% 10 ML SODIUM CHLORIDE
     Route: 042
     Dates: start: 20231226, end: 20231230

REACTIONS (2)
  - Skin mass [Recovered/Resolved]
  - Erythema [Recovered/Resolved]

NARRATIVE: CASE EVENT DATE: 20231226
